FAERS Safety Report 16298448 (Version 1)
Quarter: 2019Q2

REPORT INFORMATION
  Report Type: Spontaneous
  Country: ES (occurrence: ES)
  Receive Date: 20190510
  Receipt Date: 20190510
  Transmission Date: 20190711
  Serious: Yes (Other)
  Sender: FDA-Public Use
  Company Number: ES-ACCORD-126065

PATIENT
  Age: 68 Year
  Sex: Female
  Weight: 56 kg

DRUGS (12)
  1. PARICALCITOL. [Suspect]
     Active Substance: PARICALCITOL
     Indication: HYPERPARATHYROIDISM SECONDARY
     Route: 065
  2. CINACALCET. [Suspect]
     Active Substance: CINACALCET
     Indication: HYPERPARATHYROIDISM SECONDARY
     Route: 065
  3. ETELCALCETIDE [Concomitant]
     Active Substance: ETELCALCETIDE
     Indication: PRODUCT USED FOR UNKNOWN INDICATION
     Dosage: ALSO TAKEN 5 MG
     Route: 042
  4. LEVOTHYROXINE. [Concomitant]
     Active Substance: LEVOTHYROXINE
     Route: 065
  5. ERYTHROPOIETIN HUMAN [Concomitant]
     Active Substance: ERYTHROPOIETIN
     Route: 065
  6. HEPARIN [Concomitant]
     Active Substance: HEPARIN SODIUM
     Indication: PRODUCT USED FOR UNKNOWN INDICATION
     Route: 065
  7. SEVELAMER [Concomitant]
     Active Substance: SEVELAMER
     Route: 065
  8. SODIUM THIOSULFATE [Concomitant]
     Active Substance: SODIUM THIOSULFATE
     Indication: CALCIPHYLAXIS
     Dosage: 12.5 G
     Route: 042
  9. OMEPRAZOLE. [Concomitant]
     Active Substance: OMEPRAZOLE
     Route: 065
  10. FOLIC ACID. [Concomitant]
     Active Substance: FOLIC ACID
     Route: 065
  11. PAMIDRONIC ACID [Suspect]
     Active Substance: PAMIDRONIC ACID
     Indication: CALCIPHYLAXIS
     Route: 042
  12. ACENOCOUMAROL [Suspect]
     Active Substance: ACENOCOUMAROL
     Indication: PULMONARY EMBOLISM
     Route: 065

REACTIONS (3)
  - Calciphylaxis [Recovering/Resolving]
  - Hypocalcaemia [Unknown]
  - Gastrointestinal disorder [Unknown]

NARRATIVE: CASE EVENT DATE: 201705
